FAERS Safety Report 9396196 (Version 1)
Quarter: 2013Q3

REPORT INFORMATION
  Report Type: Spontaneous
  Country: NO (occurrence: None)
  Receive Date: 20130708
  Receipt Date: 20130708
  Transmission Date: 20140515
  Serious: Yes (Death, Other)
  Sender: FDA-Public Use
  Company Number: AUR-APL-2013-05662

PATIENT
  Age: 79 Year
  Sex: Female

DRUGS (11)
  1. METFORMIN [Suspect]
     Indication: DIABETES MELLITUS
     Dosage: 1500 MG (500 MG, 3 IN 1 D),ORAL
     Route: 048
     Dates: end: 20130612
  2. LANOXIN (DIGOXIN) [Concomitant]
  3. FOLSYRE NAF (FOLIC ACID) [Concomitant]
  4. SELO-ZOK (METOPROLOL SUCCINATE) [Concomitant]
  5. XARELTO (RIVAROXABAN) [Concomitant]
  6. DIVISUN [Concomitant]
  7. BURINEX (BUMETANIDE) [Concomitant]
  8. MOGADON (NITRAZEPAM) [Concomitant]
  9. LEVAXIN (LEVOTHYROXINE SODIUM) [Concomitant]
  10. BETOLVEX (CYANOCOBALAMIN) [Concomitant]
  11. RAMIPRIL (RAMIPRIL) [Concomitant]

REACTIONS (6)
  - Renal failure [None]
  - Lactic acidosis [None]
  - Arrhythmia [None]
  - Atrial flutter [None]
  - Cardiac failure [None]
  - Dialysis [None]
